FAERS Safety Report 7759545-9 (Version None)
Quarter: 2011Q3

REPORT INFORMATION
  Report Type: 
  Country: None (occurrence: None)
  Receive Date: 20110919
  Receipt Date: 20110909
  Transmission Date: 20111222
  Serious: Yes (Other)
  Sender: FDA-Public Use
  Company Number: US-PERRIGO-11US003331

PATIENT
  Sex: Male
  Weight: 113.38 kg

DRUGS (5)
  1. LITHIUM CARBONATE [Concomitant]
     Indication: BIPOLAR DISORDER
     Dosage: UNK, QD PRN
     Route: 048
  2. NICOTINE POLACRILEX [Suspect]
     Indication: SMOKING CESSATION THERAPY
     Dosage: 4 MG, FOUR LOZENGES/DAY
     Route: 002
     Dates: start: 20110416, end: 20110420
  3. ROXICODONE [Concomitant]
     Indication: BACK PAIN
     Dosage: 30 MG, QID
     Route: 048
     Dates: start: 20110201
  4. MORPHINE SULFATE [Concomitant]
     Indication: BACK PAIN
     Dosage: UNK
     Route: 048
  5. NICOTINE [Suspect]
     Indication: PRODUCT USED FOR UNKNOWN INDICATION
     Dosage: UNK
     Route: 055

REACTIONS (20)
  - SKIN BURNING SENSATION [None]
  - LIP DISORDER [None]
  - DIZZINESS [None]
  - SKIN DISCOLOURATION [None]
  - SCAR [None]
  - VOMITING [None]
  - NAUSEA [None]
  - PAIN [None]
  - PRURITUS [None]
  - ERUCTATION [None]
  - INSOMNIA [None]
  - SKIN WRINKLING [None]
  - HYPERSENSITIVITY [None]
  - RASH ERYTHEMATOUS [None]
  - EYE SWELLING [None]
  - RETCHING [None]
  - TOBACCO ABUSE [None]
  - DRY SKIN [None]
  - SKIN DISORDER [None]
  - HICCUPS [None]
